FAERS Safety Report 7380188-3 (Version None)
Quarter: 2011Q1

REPORT INFORMATION
  Report Type: 
  Country: None (occurrence: None)
  Receive Date: 20110329
  Receipt Date: 20101201
  Transmission Date: 20110831
  Serious: No
  Sender: FDA-Public Use
  Company Number: US-MYLANLABS-2010S1020780

PATIENT
  Age: 41 Year
  Sex: Female

DRUGS (2)
  1. ESTRADIOL [Suspect]
     Indication: HORMONE REPLACEMENT THERAPY
     Route: 062
     Dates: start: 20100316, end: 20100101
  2. NICOTINE [Concomitant]
     Route: 062

REACTIONS (1)
  - APPLICATION SITE VESICLES [None]
